FAERS Safety Report 15928459 (Version 1)
Quarter: 2019Q1

REPORT INFORMATION
  Report Type: Spontaneous
  Country: US (occurrence: US)
  Receive Date: 20190206
  Receipt Date: 20190206
  Transmission Date: 20190417
  Serious: Yes (Hospitalization, Other)
  Sender: FDA-Public Use
  Company Number: US-SA-2019SA028401

PATIENT
  Age: 52 Year
  Sex: Male

DRUGS (1)
  1. LANTUS [Suspect]
     Active Substance: INSULIN GLARGINE
     Dosage: UNK UNK, UNK
     Route: 065

REACTIONS (4)
  - Frustration tolerance decreased [Unknown]
  - Cerebrovascular accident [Unknown]
  - Headache [Unknown]
  - Abnormal behaviour [Unknown]
